FAERS Safety Report 5117834-0 (Version None)
Quarter: 2006Q3

REPORT INFORMATION
  Report Type: 
  Country: None (occurrence: None)
  Receive Date: 20060929
  Receipt Date: 20050616
  Transmission Date: 20061208
  Serious: Yes (Death)
  Sender: FDA-Public Use
  Company Number: FR-SANOFI-SYNTHELABO-A02200501719

PATIENT
  Sex: Male

DRUGS (9)
  1. SUBUTEX [Suspect]
     Dosage: UNK
     Route: 048
  2. METHADONE HCL [Suspect]
     Dosage: 100 MG
     Route: 048
  3. VALIUM [Suspect]
     Indication: DRUG USE FOR UNKNOWN INDICATION
     Route: 048
     Dates: start: 20031006, end: 20031013
  4. VALIUM [Suspect]
     Route: 048
     Dates: start: 20031013
  5. STILNOX [Suspect]
     Indication: DRUG USE FOR UNKNOWN INDICATION
     Dosage: UNK
     Route: 048
     Dates: start: 20031013
  6. THERALENE [Suspect]
     Indication: DRUG USE FOR UNKNOWN INDICATION
     Route: 048
     Dates: start: 20031010, end: 20031010
  7. THERALENE [Suspect]
     Route: 048
     Dates: start: 20031013
  8. DEROXAT [Concomitant]
     Route: 048
     Dates: start: 20030429, end: 20030429
  9. DEROXAT [Concomitant]
     Dosage: UNK
     Route: 048
     Dates: start: 20031101

REACTIONS (22)
  - ABNORMAL BEHAVIOUR [None]
  - AGGRESSION [None]
  - ANXIETY [None]
  - BLOOD GLUCOSE INCREASED [None]
  - BLOOD PRESSURE INCREASED [None]
  - CARDIAC DISORDER [None]
  - COMPLETED SUICIDE [None]
  - DEPRESSION [None]
  - DYSTHYMIC DISORDER [None]
  - ECONOMIC PROBLEM [None]
  - ELECTROCARDIOGRAM T WAVE ABNORMAL [None]
  - IMPULSIVE BEHAVIOUR [None]
  - INTENTIONAL DRUG MISUSE [None]
  - OVERDOSE [None]
  - PSYCHOMOTOR SKILLS IMPAIRED [None]
  - REFUSAL OF TREATMENT BY PATIENT [None]
  - SELF-MEDICATION [None]
  - SOCIAL AVOIDANT BEHAVIOUR [None]
  - SUICIDAL IDEATION [None]
  - SUICIDE ATTEMPT [None]
  - TREMOR [None]
  - VENTRICULAR EXTRASYSTOLES [None]
